FAERS Safety Report 13156058 (Version 1)
Quarter: 2017Q1

REPORT INFORMATION
  Report Type: Spontaneous
  Country: US (occurrence: US)
  Receive Date: 20170126
  Receipt Date: 20170126
  Transmission Date: 20170428
  Serious: Yes (Other)
  Sender: FDA-Public Use
  Company Number: US-ROCHE-740590

PATIENT
  Sex: Female
  Weight: 90.7 kg

DRUGS (2)
  1. DIAZEPAM. [Suspect]
     Active Substance: DIAZEPAM
     Indication: PRODUCT USED FOR UNKNOWN INDICATION
     Route: 065
  2. HYDROCODONE [Suspect]
     Active Substance: HYDROCODONE
     Indication: FACIAL PAIN
     Dosage: ^ONE HYDROCODONE EVERY 4 HOURS.^
     Route: 065

REACTIONS (1)
  - Drug dependence [Unknown]
